FAERS Safety Report 24892537 (Version 2)
Quarter: 2025Q2

REPORT INFORMATION
  Report Type: Spontaneous
  Country: US (occurrence: US)
  Receive Date: 20250128
  Receipt Date: 20250511
  Transmission Date: 20250717
  Serious: No
  Sender: SANOFI AVENTIS
  Company Number: US-SA-2025SA022944

PATIENT
  Age: 43 Year
  Sex: Female

DRUGS (2)
  1. DUPIXENT [Suspect]
     Active Substance: DUPILUMAB
     Indication: Dermatitis atopic
     Dosage: 300 MG, QOW
     Route: 058
     Dates: end: 202411
  2. ACETAMINOPHEN\CHLORZOXAZONE [Concomitant]
     Active Substance: ACETAMINOPHEN\CHLORZOXAZONE

REACTIONS (6)
  - Rash macular [Unknown]
  - Sleep disorder [Recovered/Resolved]
  - Back pain [Unknown]
  - Spinal operation [Unknown]
  - Rash pruritic [Unknown]
  - Burning sensation [Unknown]

NARRATIVE: CASE EVENT DATE: 20241101
